FAERS Safety Report 25975982 (Version 2)
Quarter: 2025Q4

REPORT INFORMATION
  Report Type: Spontaneous
  Country: US (occurrence: US)
  Receive Date: 20251029
  Receipt Date: 20251208
  Transmission Date: 20260117
  Serious: Yes (Other)
  Sender: CHURCH & DWIGHT
  Company Number: US-CHURCH AND DWIGHT CO., INC-2025-CDW-01696

PATIENT
  Age: 69 Year
  Sex: Female

DRUGS (1)
  1. COSMETICS [Suspect]
     Active Substance: COSMETICS
     Indication: Depilation
     Dosage: ONLY USED IT ONE TIME. USED ABOUT A TABLESPOON AMOUNT
     Route: 061
     Dates: start: 20250801, end: 20250801

REACTIONS (3)
  - Furuncle [Recovered/Resolved]
  - Application site discharge [Recovered/Resolved]
  - Application site pustules [Recovered/Resolved]

NARRATIVE: CASE EVENT DATE: 20250802
